FAERS Safety Report 9710850 (Version 1)
Quarter: 2013Q4

REPORT INFORMATION
  Report Type: Spontaneous
  Country: US (occurrence: US)
  Receive Date: 20131126
  Receipt Date: 20131126
  Transmission Date: 20140711
  Serious: No
  Sender: FDA-Public Use
  Company Number: US-BRISTOL-MYERS SQUIBB COMPANY-19022771

PATIENT
  Age: 64 Year
  Sex: Female
  Weight: 122.45 kg

DRUGS (13)
  1. BYDUREON [Suspect]
     Indication: TYPE 2 DIABETES MELLITUS
     Dosage: PRESCRIPTION #:  1424026-06779
     Route: 058
  2. LANTUS [Concomitant]
  3. INSULIN [Concomitant]
     Dosage: 60 UNITS INJ/SQ QD
     Route: 058
  4. METOPROLOL [Concomitant]
  5. ASPIRIN [Concomitant]
  6. FOLIC ACID [Concomitant]
  7. CRESTOR [Concomitant]
  8. IRON [Concomitant]
  9. PROCRIT [Concomitant]
     Indication: ANAEMIA
  10. MUCINEX [Concomitant]
     Dosage: MUCINEX REG IN AM; MUCINEX DM IN EVENING
  11. OMNARIS [Concomitant]
  12. PROAIR HFA [Concomitant]
  13. TYLENOL [Concomitant]

REACTIONS (2)
  - Headache [Recovering/Resolving]
  - Nausea [Recovering/Resolving]
